FAERS Safety Report 25919570 (Version 1)
Quarter: 2025Q4

REPORT INFORMATION
  Report Type: Spontaneous
  Country: CN (occurrence: CN)
  Receive Date: 20251014
  Receipt Date: 20251014
  Transmission Date: 20260118
  Serious: Yes (Hospitalization, Other)
  Sender: IPSEN BIOPHARMACEUTICALS, INC.
  Company Number: CN-IPSEN Group, Research and Development-2025-24998

PATIENT
  Age: 26 Year
  Sex: Female

DRUGS (2)
  1. BOTULINUM TOXIN TYPE A [Suspect]
     Active Substance: BOTULINUM TOXIN TYPE A
     Indication: Skin cosmetic procedure
     Dosage: 60 UNITS ON THE LEFT SIDE AND 40 UNITS ON THE RIGHT), TOTALING 100 UNITS
  2. BOTULINUM TOXIN TYPE A [Suspect]
     Active Substance: BOTULINUM TOXIN TYPE A
     Indication: Off label use

REACTIONS (5)
  - Neuromuscular toxicity [Recovered/Resolved]
  - Brain oedema [Unknown]
  - Off label use [Unknown]
  - Pyrexia [Unknown]
  - Oropharyngeal pain [Unknown]
